FAERS Safety Report 7450978-7 (Version None)
Quarter: 2011Q2

REPORT INFORMATION
  Report Type: 
  Country: None (occurrence: None)
  Receive Date: 20110502
  Receipt Date: 20110426
  Transmission Date: 20111010
  Serious: Yes (Death, Hospitalization)
  Sender: FDA-Public Use
  Company Number: BR-ROCHE-724113

PATIENT
  Sex: Male
  Weight: 63 kg

DRUGS (3)
  1. OXALIPLATIN [Suspect]
     Route: 065
  2. CAPECITABINE [Suspect]
     Indication: COLORECTAL CANCER
     Route: 065
  3. DEXPANTHENOL [Suspect]
     Dosage: DOSE : UNKNOWN, DATE OF LAST DOSE PRIOR TO SAE: 24 AUGUST 2010. PERMANENTLY DISCONTINUED
     Route: 061
     Dates: start: 20100811, end: 20100826

REACTIONS (3)
  - SEPSIS [None]
  - RENAL FAILURE ACUTE [None]
  - GASTROINTESTINAL TOXICITY [None]
